FAERS Safety Report 6636058-9 (Version None)
Quarter: 2010Q1

REPORT INFORMATION
  Report Type: 
  Country: None (occurrence: None)
  Receive Date: 20100316
  Receipt Date: 20100304
  Transmission Date: 20100710
  Serious: Yes (Other)
  Sender: FDA-Public Use
  Company Number: PHHY2009CH20464

PATIENT
  Age: 27 Year
  Sex: Female

DRUGS (2)
  1. ZOMETA [Suspect]
     Dosage: 4 MG / MONTH
  2. CHEMOTHERAPEUTICS NOS [Concomitant]
     Dosage: UNK

REACTIONS (4)
  - ABORTION INDUCED [None]
  - DRUG EXPOSURE DURING PREGNANCY [None]
  - MALIGNANT NEOPLASM PROGRESSION [None]
  - PREGNANCY [None]
